FAERS Safety Report 14913947 (Version 1)
Quarter: 2018Q2

REPORT INFORMATION
  Report Type: Spontaneous
  Country: US (occurrence: US)
  Receive Date: 20180518
  Receipt Date: 20180518
  Transmission Date: 20180711
  Serious: Yes (Hospitalization)
  Sender: FDA-Public Use
  Company Number: US-PFIZER INC-2018198419

PATIENT
  Age: 73 Year
  Sex: Female
  Weight: 47.17 kg

DRUGS (1)
  1. CHANTIX [Suspect]
     Active Substance: VARENICLINE TARTRATE
     Indication: SMOKING CESSATION THERAPY
     Dosage: UNK
     Dates: start: 2018, end: 201805

REACTIONS (3)
  - Injury [Unknown]
  - Fall [Unknown]
  - Spinal fracture [Unknown]

NARRATIVE: CASE EVENT DATE: 20180505
